FAERS Safety Report 7796320-3 (Version None)
Quarter: 2011Q4

REPORT INFORMATION
  Report Type: 
  Country: None (occurrence: None)
  Receive Date: 20111005
  Receipt Date: 20110927
  Transmission Date: 20120403
  Serious: Yes (Hospitalization)
  Sender: FDA-Public Use
  Company Number: US-BIOGENIDEC-2011BI025151

PATIENT
  Age: 57 Year
  Sex: Female

DRUGS (1)
  1. TYSABRI [Suspect]
     Indication: MULTIPLE SCLEROSIS
     Route: 042
     Dates: start: 20100402

REACTIONS (5)
  - ANKLE FRACTURE [None]
  - ANAESTHETIC COMPLICATION NEUROLOGICAL [None]
  - FALL [None]
  - WEIGHT INCREASED [None]
  - LOWER LIMB FRACTURE [None]
